FAERS Safety Report 25302611 (Version 2)
Quarter: 2025Q2

REPORT INFORMATION
  Report Type: Spontaneous
  Country: US (occurrence: BR)
  Receive Date: 20250512
  Receipt Date: 20250519
  Transmission Date: 20250717
  Serious: Yes (Hospitalization)
  Sender: ABBVIE
  Company Number: US-ABBVIE-6273638

PATIENT
  Age: 56 Year
  Sex: Female

DRUGS (1)
  1. ELAHERE [Suspect]
     Active Substance: MIRVETUXIMAB SORAVTANSINE-GYNX
     Indication: Ovarian cancer metastatic
     Route: 058

REACTIONS (7)
  - Dyspnoea exertional [Unknown]
  - Pneumonitis [Unknown]
  - Lung opacity [Unknown]
  - Interstitial lung disease [Unknown]
  - Eye disorder [Unknown]
  - Traumatic lung injury [Unknown]
  - Atypical pneumonia [Unknown]
